FAERS Safety Report 10452862 (Version 1)
Quarter: 2014Q3

REPORT INFORMATION
  Report Type: Spontaneous
  Country: US (occurrence: None)
  Receive Date: 20140912
  Receipt Date: 20140912
  Transmission Date: 20150326
  Serious: No
  Sender: FDA-Public Use
  Company Number: None

PATIENT
  Age: 58 Year
  Sex: Male

DRUGS (12)
  1. AMLODIPINE [Concomitant]
     Active Substance: AMLODIPINE BESYLATE
  2. COMPAZINE [Concomitant]
     Active Substance: PROCHLORPERAZINE MALEATE
  3. VITAMIN D3 [Concomitant]
     Active Substance: CHOLECALCIFEROL
  4. BABY ASPIRIN [Concomitant]
     Active Substance: ASPIRIN
  5. FOLIC ACID. [Concomitant]
     Active Substance: FOLIC ACID
  6. CRESTOR [Concomitant]
     Active Substance: ROSUVASTATIN CALCIUM
  7. DECADRON [Concomitant]
     Active Substance: DEXAMETHASONE
  8. FENOFIBRATE. [Concomitant]
     Active Substance: FENOFIBRATE
  9. CLARITIN [Concomitant]
     Active Substance: LORATADINE
  10. ALIMTA [Suspect]
     Active Substance: PEMETREXED DISODIUM
  11. AVASTIN [Suspect]
     Active Substance: BEVACIZUMAB
  12. MAGNESIUM [Concomitant]
     Active Substance: MAGNESIUM

REACTIONS (13)
  - Febrile neutropenia [None]
  - Coagulopathy [None]
  - Sepsis [None]
  - Hypomagnesaemia [None]
  - Subgaleal haematoma [None]
  - Renal failure acute [None]
  - Pancytopenia [None]
  - Liver function test abnormal [None]
  - Neutropenia [None]
  - Asthenia [None]
  - Bacterial infection [None]
  - Rhabdomyolysis [None]
  - Memory impairment [None]
